FAERS Safety Report 16290149 (Version 2)
Quarter: 2019Q2

REPORT INFORMATION
  Report Type: Report from Study
  Country: FR (occurrence: FR)
  Receive Date: 20190509
  Receipt Date: 20190517
  Transmission Date: 20190711
  Serious: Yes (Other)
  Sender: FDA-Public Use
  Company Number: FR-EMD SERONO-9088887

PATIENT
  Sex: Female

DRUGS (2)
  1. GONAL-F [Suspect]
     Active Substance: FOLLITROPIN
     Indication: IN VITRO FERTILISATION
  2. GONAL-F [Suspect]
     Active Substance: FOLLITROPIN
     Indication: CONTROLLED OVARIAN STIMULATION

REACTIONS (7)
  - Ovarian hyperstimulation syndrome [Unknown]
  - Asthmatic crisis [Unknown]
  - Palpitations [Unknown]
  - Fatigue [Unknown]
  - Affect lability [Unknown]
  - Adnexa uteri pain [Unknown]
  - Malaise [Not Recovered/Not Resolved]
